FAERS Safety Report 10792253 (Version 3)
Quarter: 2015Q2

REPORT INFORMATION
  Report Type: Spontaneous
  Country: EE (occurrence: EE)
  Receive Date: 20150213
  Receipt Date: 20150424
  Transmission Date: 20150821
  Serious: Yes (Hospitalization)
  Sender: FDA-Public Use
  Company Number: EE-NOVOPROD-437969

PATIENT
  Age: 34 Year
  Sex: Female
  Weight: 110 kg

DRUGS (6)
  1. NOVOMIX 30 FLEXPEN [Suspect]
     Active Substance: INSULIN ASPART
     Indication: TYPE 2 DIABETES MELLITUS
     Dosage: 12( UNIT NOT SPEICIFED)
     Route: 058
     Dates: start: 20150123, end: 20150128
  2. LEVEMIR [Suspect]
     Active Substance: INSULIN DETEMIR
     Indication: TYPE 2 DIABETES MELLITUS
     Dosage: 7-8 UNITS TWICE DAILY
     Route: 058
     Dates: start: 20141209
  3. METFORMIN [Concomitant]
     Active Substance: METFORMIN HYDROCHLORIDE
     Dosage: 3 G
     Route: 048
     Dates: start: 20141104
  4. LEVEMIR [Suspect]
     Active Substance: INSULIN DETEMIR
     Dosage: 90 (UNITS NOT SPECIFIED)
     Route: 058
  5. NOVORAPID [Suspect]
     Active Substance: INSULIN ASPART
     Indication: TYPE 2 DIABETES MELLITUS
     Dosage: 4-5 UNITS NOVORAPID AFTER EACH MAIN MEAL
     Route: 058
     Dates: start: 20150109
  6. NOVORAPID [Suspect]
     Active Substance: INSULIN ASPART
     Dosage: 100 (UNITS NOT SPECIFIED)
     Route: 058

REACTIONS (6)
  - Wrong drug administered [Unknown]
  - Hypoglycaemia [Unknown]
  - Drug dispensing error [Unknown]
  - Exposure during pregnancy [Recovered/Resolved]
  - Foetal hypokinesia [Recovered/Resolved]
  - Diabetes mellitus inadequate control [Not Recovered/Not Resolved]

NARRATIVE: CASE EVENT DATE: 20141209
